FAERS Safety Report 9706622 (Version 2)
Quarter: 2014Q1

REPORT INFORMATION
  Report Type: Report from Study
  Country: US (occurrence: US)
  Receive Date: 20131125
  Receipt Date: 20140108
  Transmission Date: 20141002
  Serious: Yes (Other)
  Sender: FDA-Public Use
  Company Number: US-JNJFOC-20131110154

PATIENT
  Age: 57 Year
  Sex: Male
  Weight: 138.35 kg

DRUGS (6)
  1. XARELTO [Suspect]
     Indication: PULMONARY EMBOLISM
     Route: 048
     Dates: start: 20131110, end: 20131114
  2. XARELTO [Suspect]
     Indication: DEEP VEIN THROMBOSIS
     Route: 048
     Dates: start: 20131110, end: 20131114
  3. FISH OIL [Concomitant]
     Indication: EYE DISORDER
     Route: 065
  4. SAW PALMETTO [Concomitant]
     Indication: PROSTATOMEGALY
     Route: 065
  5. VITAMIN C [Concomitant]
     Indication: GINGIVAL DISORDER
     Route: 065
  6. VITAMIN B12 [Concomitant]
     Route: 065

REACTIONS (2)
  - Urticaria [Recovered/Resolved]
  - Wrong technique in drug usage process [Unknown]
